FAERS Safety Report 22012442 (Version 1)
Quarter: 2023Q1

REPORT INFORMATION
  Report Type: Spontaneous
  Country: JP (occurrence: JP)
  Receive Date: 20230220
  Receipt Date: 20230220
  Transmission Date: 20230418
  Serious: Yes (Hospitalization)
  Sender: FDA-Public Use
  Company Number: JP-DSJP-DSJ-2023-106088

PATIENT
  Age: 9 Decade
  Sex: Female

DRUGS (5)
  1. PRASUGREL HYDROCHLORIDE [Suspect]
     Active Substance: PRASUGREL HYDROCHLORIDE
     Indication: Myocardial infarction
     Dosage: UNK
     Route: 048
     Dates: start: 202101
  2. APIXABAN [Suspect]
     Active Substance: APIXABAN
     Dosage: UNK
     Route: 048
     Dates: start: 202101
  3. APIXABAN [Suspect]
     Active Substance: APIXABAN
     Dosage: UNK
     Route: 048
     Dates: start: 2022
  4. ACETYLSALICYLIC ACID;VONOPRAZAN FUMARATE [Concomitant]
     Dosage: UNK
     Route: 048
     Dates: start: 202101
  5. ICOSAPENT ETHYL [Concomitant]
     Active Substance: ICOSAPENT ETHYL
     Dosage: UNK
     Route: 048
     Dates: start: 202101

REACTIONS (3)
  - Deep vein thrombosis [Unknown]
  - Pulmonary artery occlusion [Unknown]
  - Haemorrhage subcutaneous [Unknown]

NARRATIVE: CASE EVENT DATE: 20220101
